FAERS Safety Report 9245737 (Version 1)
Quarter: 2013Q2

REPORT INFORMATION
  Report Type: Spontaneous
  Country: US (occurrence: US)
  Receive Date: 20130422
  Receipt Date: 20130422
  Transmission Date: 20140414
  Serious: Yes (Other)
  Sender: FDA-Public Use
  Company Number: US-PFIZER INC-2013124463

PATIENT
  Age: 70 Year
  Sex: Female
  Weight: 65.3 kg

DRUGS (2)
  1. LYRICA [Suspect]
     Indication: MUSCLE SPASMS
     Dosage: 200 MG, 1X/DAY
     Route: 048
  2. GLEEVEC [Concomitant]
     Indication: LEUKAEMIA
     Dosage: UNK

REACTIONS (2)
  - Arthropathy [Unknown]
  - Off label use [Unknown]
